FAERS Safety Report 5234514-1 (Version None)
Quarter: 2007Q1

REPORT INFORMATION
  Report Type: 
  Country: None (occurrence: None)
  Receive Date: 20070208
  Receipt Date: 20070208
  Transmission Date: 20070707
  Serious: Yes (Life-Threatening, Hospitalization)
  Sender: FDA-Public Use
  Company Number: None

PATIENT
  Age: 32 Year
  Sex: Female
  Weight: 63.5036 kg

DRUGS (2)
  1. APRI BIRTH CONTROL [Suspect]
     Indication: ORAL CONTRACEPTION
     Dosage: 1 PILL DAILY PO
     Route: 048
     Dates: start: 20060901, end: 20061005
  2. LORATIDIN [Concomitant]

REACTIONS (1)
  - PULMONARY EMBOLISM [None]
